FAERS Safety Report 20853606 (Version 3)
Quarter: 2022Q3

REPORT INFORMATION
  Report Type: Spontaneous
  Country: US (occurrence: US)
  Receive Date: 20220520
  Receipt Date: 20220706
  Transmission Date: 20221027
  Serious: No
  Sender: FDA-Public Use
  Company Number: US-PFIZER INC-202200718221

PATIENT
  Age: 86 Year
  Sex: Female
  Weight: 58.51 kg

DRUGS (1)
  1. PAXLOVID [Suspect]
     Active Substance: NIRMATRELVIR\RITONAVIR
     Indication: COVID-19 treatment
     Dosage: [PF-07321332 300 MG]/[RITONAVIR 100 MG]; 2X/DAY
     Route: 048

REACTIONS (7)
  - Dysgeusia [Unknown]
  - Discomfort [Unknown]
  - Diarrhoea [Unknown]
  - Abdominal pain upper [Unknown]
  - Proctalgia [Unknown]
  - Myalgia [Unknown]
  - Insomnia [Unknown]
